FAERS Safety Report 7767370-8 (Version None)
Quarter: 2011Q3

REPORT INFORMATION
  Report Type: 
  Country: None (occurrence: None)
  Receive Date: 20110922
  Receipt Date: 20110113
  Transmission Date: 20111222
  Serious: No
  Sender: FDA-Public Use
  Company Number: US-ASTRAZENECA-2007UW10009

PATIENT
  Age: 5100 Day
  Sex: Female
  Weight: 118.8 kg

DRUGS (10)
  1. SEROQUEL [Suspect]
     Indication: BIPOLAR DISORDER
     Dosage: 200 MG, 300 MG
     Route: 048
     Dates: start: 20050509, end: 20060601
  2. SEROQUEL [Suspect]
     Route: 048
     Dates: start: 20050509, end: 20060710
  3. ZOLOFT [Concomitant]
     Indication: BIPOLAR DISORDER
     Dates: start: 20060701
  4. RISPERDAL [Concomitant]
  5. LEXAPRO [Concomitant]
     Indication: BIPOLAR DISORDER
     Dosage: 10 MG
     Dates: start: 20050509, end: 20060730
  6. TRILEPTAL [Concomitant]
     Dates: start: 20050509
  7. DEPAKOTE [Concomitant]
     Indication: BIPOLAR DISORDER
     Dosage: 500 MG
     Dates: start: 20060701
  8. DEPO-PROVERA [Concomitant]
     Dates: start: 20060701
  9. ABILIFY [Concomitant]
     Indication: BIPOLAR DISORDER
     Dosage: 10 MG; 26-MAY-2006, 28-JUN-2006, 30-JUL-2006
  10. ADDERALL XR 10 [Concomitant]
     Indication: BIPOLAR DISORDER
     Dosage: 30 MG, 5 MG
     Dates: start: 20051209, end: 20060730

REACTIONS (5)
  - JOINT INJURY [None]
  - TYPE 2 DIABETES MELLITUS [None]
  - HYPERINSULINAEMIA [None]
  - INSULIN RESISTANCE [None]
  - POST-TRAUMATIC NECK SYNDROME [None]
